FAERS Safety Report 4700070-7 (Version None)
Quarter: 2005Q2

REPORT INFORMATION
  Report Type: 
  Country: None (occurrence: None)
  Receive Date: 20050627
  Receipt Date: 20050623
  Transmission Date: 20051028
  Serious: Yes (Death)
  Sender: FDA-Public Use
  Company Number: 407704

PATIENT
  Age: 67 Year
  Sex: Male

DRUGS (3)
  1. CARVEDILOL [Suspect]
     Dosage: 3.125MG TWICE PER DAY
     Route: 048
  2. DIURETIC [Concomitant]
  3. ANGIOTENSIN-CONVERTING ENZYME INHIBITOR (UNSPECIFIED) [Concomitant]

REACTIONS (1)
  - DEATH [None]
